FAERS Safety Report 6237548-3 (Version None)
Quarter: 2009Q2

REPORT INFORMATION
  Report Type: 
  Country: None (occurrence: None)
  Receive Date: 20090616
  Receipt Date: 20090604
  Transmission Date: 20091009
  Serious: Yes (Death, Hospitalization)
  Sender: FDA-Public Use
  Company Number: 2008AL011044

PATIENT
  Age: 83 Year
  Sex: Female

DRUGS (8)
  1. DIGOXIN [Suspect]
     Dosage: 0.25MG, PO
     Route: 048
     Dates: start: 20020101, end: 20080101
  2. ENALAPRIL [Concomitant]
  3. FUROSEMIDE INTENSOL [Concomitant]
  4. PREDNISONE [Concomitant]
  5. WARFARIN SODIUM [Concomitant]
  6. OXYBUTYNIN CHLORIDE [Concomitant]
  7. PROMETHAZINE [Concomitant]
  8. METOPROLOL SUCCINATE [Concomitant]

REACTIONS (12)
  - CARDIAC FAILURE CONGESTIVE [None]
  - DIARRHOEA [None]
  - DIZZINESS [None]
  - ECONOMIC PROBLEM [None]
  - HYPERKALAEMIA [None]
  - HYPOKALAEMIA [None]
  - INJURY [None]
  - NAUSEA [None]
  - PAIN [None]
  - PRODUCT QUALITY ISSUE [None]
  - RENAL FAILURE [None]
  - VOMITING [None]
